FAERS Safety Report 19374648 (Version 1)
Quarter: 2021Q2

REPORT INFORMATION
  Report Type: Spontaneous
  Country: JP (occurrence: JP)
  Receive Date: 20210604
  Receipt Date: 20210604
  Transmission Date: 20210717
  Serious: Yes (Hospitalization, Other)
  Sender: FDA-Public Use
  Company Number: JP-BION-009778

PATIENT
  Age: 85 Year
  Sex: Female

DRUGS (1)
  1. APIXABAN [Suspect]
     Active Substance: APIXABAN
     Indication: EMBOLISM
     Dosage: APIXABAN 2.5 MG TWICE A DAY
     Route: 048

REACTIONS (1)
  - Aortic aneurysm rupture [Recovering/Resolving]
